FAERS Safety Report 5722658-7 (Version None)
Quarter: 2008Q2

REPORT INFORMATION
  Report Type: 
  Country: None (occurrence: None)
  Receive Date: 20080429
  Receipt Date: 20070718
  Transmission Date: 20081010
  Serious: No
  Sender: FDA-Public Use
  Company Number: US-ASTRAZENECA-2007UW17022

PATIENT
  Age: 68 Year
  Sex: Female
  Weight: 94.3 kg

DRUGS (3)
  1. NEXIUM [Suspect]
     Indication: HELICOBACTER GASTRITIS
     Route: 048
  2. NEXIUM [Suspect]
     Route: 048
     Dates: start: 20070712
  3. ANTIBIOTIC (CONTAINING TETRACYCLINE) [Concomitant]

REACTIONS (5)
  - INTESTINAL FUNCTIONAL DISORDER [None]
  - NAUSEA [None]
  - PAIN [None]
  - RECTAL HAEMORRHAGE [None]
  - RIB FRACTURE [None]
